FAERS Safety Report 20097023 (Version 2)
Quarter: 2021Q4

REPORT INFORMATION
  Report Type: Spontaneous
  Country: CN (occurrence: CN)
  Receive Date: 20211122
  Receipt Date: 20211129
  Transmission Date: 20220303
  Serious: Yes (Other)
  Sender: FDA-Public Use
  Company Number: CN-BEH-2021138404

PATIENT
  Age: 79 Year
  Sex: Male

DRUGS (18)
  1. ALBURX [Suspect]
     Active Substance: ALBUMIN HUMAN
     Indication: Hypoproteinaemia
     Dosage: UNK
     Route: 041
     Dates: start: 20211110, end: 20211111
  2. LEUCOGEN [Concomitant]
     Active Substance: LEUCOGEN
     Dosage: 20 MILLIGRAM, TID LONG-TERM CARE
     Route: 048
     Dates: start: 20211106, end: 20211114
  3. LEUCOGEN [Concomitant]
     Active Substance: LEUCOGEN
     Dosage: 20 MILLIGRAM, TID 1 DAY TOTAL: 48 TABLETS
     Route: 048
     Dates: start: 20211106
  4. SODIUM CHLORIDE [Concomitant]
     Active Substance: SODIUM CHLORIDE
     Dosage: 100 MILLILITER, QOD
     Dates: start: 20211106, end: 20211110
  5. SODIUM CHLORIDE [Concomitant]
     Active Substance: SODIUM CHLORIDE
     Dosage: 50 MILLILITER, OD 50ML CONTINUED DROPS ONCE 1 DAY TOTAL: 1 BOTTLE
     Dates: start: 20211109
  6. SODIUM CHLORIDE [Concomitant]
     Active Substance: SODIUM CHLORIDE
     Dosage: 50 MILLILITER, OD 50ML CONTINUED DROP ONCE 1 DAY TOTAL: 1 BOTTLE FLUSHING TUBE
     Dates: start: 20211110
  7. SODIUM CHLORIDE [Concomitant]
     Active Substance: SODIUM CHLORIDE
     Dosage: 50 MILLILITER, OD 50ML CONTINUED DROP ONCE 1 DAY TOTAL: 1 BOTTLE FLUSHING TUBE
     Dates: start: 20211111
  8. SODIUM CHLORIDE [Concomitant]
     Active Substance: SODIUM CHLORIDE
     Dosage: 50 MILLILITER, OD 50ML CONTINUED DROP ONCE 1 DAY TOTAL: 1 BOTTLE
     Dates: start: 20211112
  9. SODIUM CHLORIDE [Concomitant]
     Active Substance: SODIUM CHLORIDE
     Dosage: 50 MILLILITER, OD 50ML CONTINUED DROP ONCE 1 DAY TOTAL: 1 BOTTLE FLUSHING TUBE
     Dates: start: 20211113
  10. IRON SUCROSE [Concomitant]
     Active Substance: IRON SUCROSE
     Dosage: 5 MILLILITER, QOD
     Dates: start: 20211106, end: 20211110
  11. AMINO ACIDS, SOURCE UNSPECIFIED [Concomitant]
     Active Substance: AMINO ACIDS, SOURCE UNSPECIFIED
     Dosage: 250 MILLILITER, QD CONTINUED DROPS
     Dates: start: 20211106, end: 20211113
  12. POTASSIUM CHLORIDE [Concomitant]
     Active Substance: POTASSIUM CHLORIDE
     Dosage: 10 GRAM, BID LONG-TERM CARE
     Route: 048
     Dates: start: 20211106, end: 20211110
  13. POTASSIUM CHLORIDE [Concomitant]
     Active Substance: POTASSIUM CHLORIDE
     Dosage: 10 GRAM, BID 1 DAY TOTAL: 15 BAGS
     Route: 048
     Dates: start: 20211106
  14. AMYLASE;BIFIDOBACTERIUM LACTIS;GLUCOAMYLASE;LACTOBACILLUS ACIDOPHILUS; [Concomitant]
     Dosage: 2 GRAM, TID LONG-TERM CARE
     Route: 048
     Dates: start: 20211108, end: 20211114
  15. AMYLASE;BIFIDOBACTERIUM LACTIS;GLUCOAMYLASE;LACTOBACILLUS ACIDOPHILUS; [Concomitant]
     Dosage: 2 GRAM, TID 1 DAY TOTAL: 36 TABLETS
     Route: 048
     Dates: start: 20211108
  16. ESTAZOLAM [Concomitant]
     Active Substance: ESTAZOLAM
     Dosage: 1 MILLIGRAM, OD 1MG ORAL OND 1 DAY TOTAL: 1 TABLET
     Route: 048
     Dates: start: 20211110
  17. ANTIPYRINE [Concomitant]
     Active Substance: ANTIPYRINE
     Dosage: 2 MILLILITER, OD 2ML INTRAMUSCULAR INJECTION ONCE 1 DAY
     Route: 030
     Dates: start: 20211110
  18. HEPARIN SODIUM [Concomitant]
     Active Substance: HEPARIN SODIUM
     Dosage: 12500 INTERNATIONAL UNIT, OD 12500U INTRAVENOUS INJECTION ONCE 1 DAY
     Route: 042
     Dates: start: 20211110

REACTIONS (1)
  - Hyperpyrexia [Recovered/Resolved]

NARRATIVE: CASE EVENT DATE: 20211110
